FAERS Safety Report 21915779 (Version 10)
Quarter: 2025Q1

REPORT INFORMATION
  Report Type: Spontaneous
  Country: US (occurrence: US)
  Receive Date: 20230126
  Receipt Date: 20250113
  Transmission Date: 20250409
  Serious: No
  Sender: PFIZER
  Company Number: US-PFIZER INC-PV202300016798

PATIENT
  Age: 72 Year
  Sex: Male
  Weight: 109.02 kg

DRUGS (3)
  1. BOSULIF [Suspect]
     Active Substance: BOSUTINIB MONOHYDRATE
     Indication: Leukaemia
     Dates: start: 2022
  2. BOSULIF [Suspect]
     Active Substance: BOSUTINIB MONOHYDRATE
  3. BOSULIF [Suspect]
     Active Substance: BOSUTINIB MONOHYDRATE
     Dosage: 300 MG, DAILY (3 TABLETS BY MOUTH DAILY WITH FOOD. TAKE WHOLE, DO NOT BREAK TABLET)
     Route: 048

REACTIONS (1)
  - Diarrhoea [Unknown]
